FAERS Safety Report 15016192 (Version 1)
Quarter: 2018Q2

REPORT INFORMATION
  Report Type: Spontaneous
  Country: US (occurrence: US)
  Receive Date: 20180615
  Receipt Date: 20180615
  Transmission Date: 20180711
  Serious: No
  Sender: FDA-Public Use
  Company Number: US-009507513-1806USA004845

PATIENT
  Sex: Female

DRUGS (1)
  1. NEXPLANON [Suspect]
     Active Substance: ETONOGESTREL
     Dosage: 1 DF IN LEFT ARM, EVERY 3 YEARS
     Route: 059
     Dates: start: 20180403

REACTIONS (1)
  - Inappropriate schedule of drug administration [Unknown]
